FAERS Safety Report 20411465 (Version 1)
Quarter: 2022Q1

REPORT INFORMATION
  Report Type: Spontaneous
  Country: US (occurrence: None)
  Receive Date: 20220201
  Receipt Date: 20220201
  Transmission Date: 20220423
  Serious: Yes (Life-Threatening)
  Sender: FDA-Public Use
  Company Number: None

PATIENT
  Age: 64 Year
  Sex: Female
  Weight: 64 kg

DRUGS (3)
  1. EMPAGLIFLOZIN [Suspect]
     Active Substance: EMPAGLIFLOZIN
     Indication: Type 2 diabetes mellitus
     Dosage: FREQUENCY : DAILY;?
     Route: 048
     Dates: start: 20211025, end: 20220124
  2. metformin 1000mg daily [Concomitant]
     Dates: end: 20220124
  3. levothyroxine 112 mcg daily [Concomitant]

REACTIONS (7)
  - COVID-19 [None]
  - Hypothermia [None]
  - Unresponsive to stimuli [None]
  - Diabetic ketoacidosis [None]
  - Acute kidney injury [None]
  - Haemodialysis [None]
  - Encephalopathy [None]

NARRATIVE: CASE EVENT DATE: 20220124
